FAERS Safety Report 6570357-4 (Version None)
Quarter: 2010Q1

REPORT INFORMATION
  Report Type: 
  Country: None (occurrence: None)
  Receive Date: 20100204
  Receipt Date: 20100126
  Transmission Date: 20100710
  Serious: Yes (Other)
  Sender: FDA-Public Use
  Company Number: JP-JNJFOC-20100201841

PATIENT

DRUGS (2)
  1. ITRIZOLE [Suspect]
     Indication: DRUG USE FOR UNKNOWN INDICATION
     Route: 048
  2. ONCOVIN [Suspect]
     Indication: DRUG USE FOR UNKNOWN INDICATION
     Route: 042

REACTIONS (1)
  - MUSCULAR WEAKNESS [None]
